FAERS Safety Report 11080753 (Version 1)
Quarter: 2015Q2

REPORT INFORMATION
  Report Type: Spontaneous
  Country: US (occurrence: None)
  Receive Date: 20150430
  Receipt Date: 20150430
  Transmission Date: 20150821
  Serious: Yes (Hospitalization)
  Sender: FDA-Public Use
  Company Number: None

PATIENT
  Age: 76 Year
  Sex: Male
  Weight: 111.59 kg

DRUGS (16)
  1. INSULIN LISPRO SLIDING SCALE [Concomitant]
  2. ISOSORBIDE MONONITRATE. [Concomitant]
     Active Substance: ISOSORBIDE MONONITRATE
  3. RANITIDINE [Concomitant]
     Active Substance: RANITIDINE\RANITIDINE HYDROCHLORIDE
  4. WARFARIN 2MG [Suspect]
     Active Substance: WARFARIN
     Indication: ATRIAL FIBRILLATION
     Route: 048
  5. ATORVASTATIN [Concomitant]
     Active Substance: ATORVASTATIN
  6. FENOFIBRATE. [Concomitant]
     Active Substance: FENOFIBRATE
  7. CARVEDILOL. [Concomitant]
     Active Substance: CARVEDILOL
  8. LOSARTAN [Concomitant]
     Active Substance: LOSARTAN
  9. PRIMIDONE. [Concomitant]
     Active Substance: PRIMIDONE
  10. ALLOPURINOL. [Concomitant]
     Active Substance: ALLOPURINOL
  11. CHOLECALCIFEROL [Concomitant]
     Active Substance: CHOLECALCIFEROL
  12. INSULIN LISPRO [Concomitant]
     Active Substance: INSULIN LISPRO
  13. VIT B COMPLEX + FOLIC ACID [Concomitant]
  14. AZITHROMYCIN [Suspect]
     Active Substance: AZITHROMYCIN ANHYDROUS
     Indication: DIVERTICULITIS
     Route: 048
     Dates: start: 20150416, end: 20150426
  15. HYDROCODONE/ACETAMINOPHEN 5/325 [Concomitant]
  16. NPH INSULIN [Concomitant]
     Active Substance: INSULIN BEEF

REACTIONS (2)
  - International normalised ratio increased [None]
  - Haematochezia [None]

NARRATIVE: CASE EVENT DATE: 20150426
